FAERS Safety Report 4651511-5 (Version None)
Quarter: 2005Q2

REPORT INFORMATION
  Report Type: 
  Country: None (occurrence: None)
  Receive Date: 20050502
  Receipt Date: 20050429
  Transmission Date: 20051028
  Serious: Yes (Other)
  Sender: FDA-Public Use
  Company Number: 2005-US-00529

PATIENT
  Age: 77 Year
  Sex: Male

DRUGS (1)
  1. FLUOXETINE [Suspect]
     Indication: DEPRESSION
     Dosage: QD, ORAL
     Route: 048

REACTIONS (6)
  - BRUXISM [None]
  - DYSKINESIA [None]
  - DYSTONIA [None]
  - PARKINSONISM [None]
  - STEREOTYPIC MOVEMENT DISORDER [None]
  - TRISMUS [None]
